FAERS Safety Report 5964779-X (Version None)
Quarter: 2008Q4

REPORT INFORMATION
  Report Type: 
  Country: None (occurrence: None)
  Receive Date: 20081125
  Receipt Date: 20080314
  Transmission Date: 20090506
  Serious: No
  Sender: FDA-Public Use
  Company Number: US-BAYER-200810894BCC

PATIENT
  Age: 67 Year
  Sex: Female
  Weight: 84 kg

DRUGS (9)
  1. ALEVE [Suspect]
     Indication: PAIN IN EXTREMITY
     Dosage: TOTAL DAILY DOSE: 440 MG  UNIT DOSE: 220 MG
     Route: 048
     Dates: start: 20080229
  2. RISPERDAL [Concomitant]
  3. LISINOPRIL [Concomitant]
  4. CRESTOR [Concomitant]
  5. DOXYCYCLINE [Concomitant]
  6. MINOXIDIL [Concomitant]
  7. VITAMIN B [Concomitant]
  8. CALCIUM [Concomitant]
  9. ASPIRIN [Concomitant]

REACTIONS (1)
  - FOREIGN BODY TRAUMA [None]
